FAERS Safety Report 4538328-7 (Version None)
Quarter: 2004Q4

REPORT INFORMATION
  Report Type: 
  Country: None (occurrence: None)
  Receive Date: 20041223
  Receipt Date: 20040708
  Transmission Date: 20050328
  Serious: Yes (Hospitalization)
  Sender: FDA-Public Use
  Company Number: 2004IM000336

PATIENT
  Age: 63 Year
  Sex: Male

DRUGS (7)
  1. INTERFERON GAMMA-1B (INTERFERON GAMMA-1B) [Suspect]
     Indication: INTERSTITIAL LUNG DISEASE
     Dosage: 200 UG; TIW, SUBCUTANEOUS
     Route: 058
     Dates: start: 20030130
  2. AZATHIOPRINE [Suspect]
     Dosage: 50 MG; QD PO
     Route: 048
     Dates: start: 20040114, end: 20040210
  3. OMEPRAZOLE [Concomitant]
  4. CALCIUM WITH VITAMIN D (ERGOCALCIFEROL/CALCIUM PHOSPHATE/CALCIUM SODIU [Concomitant]
  5. FENOTEROL HYDROBROMIDE (FENOTEROL HYDROBROMIDE) [Concomitant]
  6. NITROGLICERINA (GLYCERYL TRINITRATE) [Concomitant]
  7. ASPIRIN [Concomitant]

REACTIONS (10)
  - ABDOMINAL PAIN [None]
  - DISEASE PROGRESSION [None]
  - DIZZINESS [None]
  - DYSPNOEA EXACERBATED [None]
  - HEPATITIS [None]
  - HEPATOTOXICITY [None]
  - INTERSTITIAL LUNG DISEASE [None]
  - LYMPHOPENIA [None]
  - NAUSEA [None]
  - VOMITING [None]
